FAERS Safety Report 9338135 (Version 1)
Quarter: 2013Q2

REPORT INFORMATION
  Report Type: Spontaneous
  Country: CO (occurrence: CO)
  Receive Date: 20130610
  Receipt Date: 20130610
  Transmission Date: 20140414
  Serious: Yes (Death, Hospitalization)
  Sender: FDA-Public Use
  Company Number: CO-B.I. PHARMACEUTICALS,INC./RIDGEFIELD-2013-RA-00149RA

PATIENT
  Age: 81 Year
  Sex: Female

DRUGS (10)
  1. PRADAXA [Suspect]
     Indication: CEREBROVASCULAR ACCIDENT PROPHYLAXIS
     Dosage: 110MG EVERY 12 HOURS
     Route: 048
     Dates: start: 20130409, end: 20130519
  2. AMIODARONE [Concomitant]
     Indication: ATRIAL FIBRILLATION
     Route: 048
  3. METOPROLOL [Concomitant]
     Indication: ATRIAL FIBRILLATION
     Route: 048
  4. SPIRONOLACTONE [Concomitant]
     Indication: HYPERTENSION
     Route: 048
  5. AMLODIPINE [Concomitant]
     Indication: HYPERTENSION
     Route: 048
  6. NYSTATIN [Concomitant]
     Indication: CANDIDA INFECTION
     Route: 048
  7. IPRATROPIUM BROMIDE [Concomitant]
     Indication: CHRONIC OBSTRUCTIVE PULMONARY DISEASE
     Route: 055
  8. FUROSEMIDE [Concomitant]
     Indication: HYPERTENSION
     Route: 048
  9. LOVASTATINA [Concomitant]
     Indication: CARDIOVASCULAR EVENT PROPHYLAXIS
     Route: 048
  10. LOSARTAN [Concomitant]
     Indication: HYPERTENSION
     Route: 048

REACTIONS (1)
  - Upper gastrointestinal haemorrhage [Fatal]
